FAERS Safety Report 5868676-X (Version None)
Quarter: 2008Q3

REPORT INFORMATION
  Report Type: 
  Country: None (occurrence: None)
  Receive Date: 20080903
  Receipt Date: 20080826
  Transmission Date: 20090109
  Serious: Yes (Hospitalization)
  Sender: FDA-Public Use
  Company Number: PHHY2008DE19186

PATIENT
  Age: 7 Year
  Sex: Female

DRUGS (1)
  1. ELIDEL [Suspect]
     Indication: VITILIGO
     Dosage: UNK
     Route: 061
     Dates: start: 20080817, end: 20080822

REACTIONS (4)
  - BALANCE DISORDER [None]
  - DIPLOPIA [None]
  - DIZZINESS [None]
  - NAUSEA [None]
